FAERS Safety Report 9416616 (Version 1)
Quarter: 2013Q3

REPORT INFORMATION
  Report Type: Report from Study
  Country: DK (occurrence: DK)
  Receive Date: 20130724
  Receipt Date: 20130724
  Transmission Date: 20140515
  Serious: Yes (Other)
  Sender: FDA-Public Use
  Company Number: DK-BAXTER-2013BAX028629

PATIENT
  Sex: 0

DRUGS (8)
  1. TISSEEL [Suspect]
     Indication: HERNIA REPAIR
     Route: 065
  2. BUPIVACAINE /00330102/ [Suspect]
     Indication: ANAESTHESIA
     Route: 065
  3. CEFUROXIM                          /00454602/ [Concomitant]
     Indication: ANTIBIOTIC PROPHYLAXIS
     Route: 042
  4. PARACETAMOL COMP                   /00271101/ [Concomitant]
     Indication: ANALGESIC THERAPY
     Route: 048
  5. PARACETAMOL COMP                   /00271101/ [Concomitant]
     Route: 048
  6. DEXAMETHASONE [Concomitant]
     Indication: PRODUCT USED FOR UNKNOWN INDICATION
     Route: 048
  7. KETOROLAC                          /01001802/ [Concomitant]
     Indication: ANALGESIC THERAPY
     Route: 042
  8. DICLOFENAC                         /00372302/ [Concomitant]
     Indication: ANALGESIC THERAPY
     Route: 048

REACTIONS (1)
  - Drug ineffective [Unknown]
